FAERS Safety Report 20709424 (Version 1)
Quarter: 2022Q2

REPORT INFORMATION
  Report Type: Spontaneous
  Country: US (occurrence: None)
  Receive Date: 20220413
  Receipt Date: 20220413
  Transmission Date: 20220720
  Serious: Yes (Life-Threatening, Hospitalization)
  Sender: FDA-Public Use
  Company Number: None

PATIENT
  Age: 76 Year
  Sex: Female
  Weight: 90 kg

DRUGS (1)
  1. EPINEPHRINE [Suspect]
     Active Substance: EPINEPHRINE
     Indication: Injection site anaesthesia
     Dates: start: 20220401, end: 20220401

REACTIONS (9)
  - Tremor [None]
  - Anxiety [None]
  - Panic attack [None]
  - Head discomfort [None]
  - Screaming [None]
  - Heart rate increased [None]
  - Hypertension [None]
  - Loss of control of legs [None]
  - Computerised tomogram normal [None]

NARRATIVE: CASE EVENT DATE: 20220401
